FAERS Safety Report 7597110-7 (Version None)
Quarter: 2011Q3

REPORT INFORMATION
  Report Type: 
  Country: None (occurrence: None)
  Receive Date: 20110708
  Receipt Date: 20110705
  Transmission Date: 20111222
  Serious: Yes (Death)
  Sender: FDA-Public Use
  Company Number: GB-PFIZER INC-2011151032

PATIENT
  Age: 43 Year
  Sex: Female

DRUGS (4)
  1. PHENYTOIN [Suspect]
     Dosage: UNK
  2. CHLORDIAZEPOXIDE [Suspect]
     Dosage: UNK
  3. DIHYDROCODEINE [Suspect]
  4. OXAZEPAM [Suspect]
     Dosage: UNK

REACTIONS (2)
  - ALCOHOL POISONING [None]
  - TOXICITY TO VARIOUS AGENTS [None]
